FAERS Safety Report 16944313 (Version 2)
Quarter: 2019Q4

REPORT INFORMATION
  Report Type: Spontaneous
  Country: CH (occurrence: CH)
  Receive Date: 20191022
  Receipt Date: 20191029
  Transmission Date: 20200122
  Serious: Yes (Hospitalization)
  Sender: FDA-Public Use
  Company Number: CH-ASTRAZENECA-2019SF46154

PATIENT
  Age: 61 Year
  Sex: Male

DRUGS (18)
  1. OLMESARTAN [Suspect]
     Active Substance: OLMESARTAN
     Dosage: IN TOTAL
     Route: 048
     Dates: start: 20190925, end: 20190926
  2. CLEXANE [Concomitant]
     Active Substance: ENOXAPARIN SODIUM
  3. DALMADORM [Concomitant]
     Active Substance: FLURAZEPAM HYDROCHLORIDE
     Route: 048
  4. DAFALGAN [Concomitant]
     Active Substance: ACETAMINOPHEN
     Dosage: AS NECESSARY
     Route: 048
  5. SEROQUEL [Suspect]
     Active Substance: QUETIAPINE FUMARATE
     Route: 048
     Dates: start: 201901
  6. SEROQUEL [Suspect]
     Active Substance: QUETIAPINE FUMARATE
     Dosage: AS REQUIRED
     Route: 048
     Dates: start: 201901
  7. PYRIDOXINE [Concomitant]
     Active Substance: PYRIDOXINE
     Route: 048
  8. SEROQUEL [Suspect]
     Active Substance: QUETIAPINE FUMARATE
     Dosage: NON-AZ- SANDOZ300.0MG AS REQUIRED
     Route: 048
     Dates: start: 201901
  9. VENLAFAXINE ER [Suspect]
     Active Substance: VENLAFAXINE HYDROCHLORIDE
     Route: 065
     Dates: start: 201901
  10. SEROQUEL [Suspect]
     Active Substance: QUETIAPINE FUMARATE
     Dosage: 50.0MG AS REQUIRED
     Route: 048
     Dates: start: 201901
  11. SEROQUEL [Suspect]
     Active Substance: QUETIAPINE FUMARATE
     Dosage: 50.0MG AS REQUIRED
     Route: 048
     Dates: start: 201901
  12. MAGNESIUM HYDROXIDE. [Concomitant]
     Active Substance: MAGNESIUM HYDROXIDE
     Route: 048
     Dates: end: 20190912
  13. AMLODIPINE [Concomitant]
     Active Substance: AMLODIPINE BESYLATE
     Route: 048
     Dates: start: 20190911
  14. ARCOXIA [Concomitant]
     Active Substance: ETORICOXIB
     Route: 048
     Dates: end: 20190910
  15. SERESTA [Concomitant]
     Active Substance: OXAZEPAM
     Dates: end: 20190718
  16. NEXIUM MUPS [Suspect]
     Active Substance: ESOMEPRAZOLE
     Route: 048
  17. AMLODIPINE;OLMESARTAN [Suspect]
     Active Substance: AMLODIPINE\OLMESARTAN
     Route: 048
     Dates: end: 20190910
  18. REMERON [Suspect]
     Active Substance: MIRTAZAPINE
     Route: 065

REACTIONS (2)
  - Diarrhoea [Unknown]
  - Hypotension [Unknown]

NARRATIVE: CASE EVENT DATE: 20190719
